FAERS Safety Report 21225437 (Version 3)
Quarter: 2022Q3

REPORT INFORMATION
  Report Type: Report from Study
  Country: CN (occurrence: CN)
  Receive Date: 20220818
  Receipt Date: 20220906
  Transmission Date: 20221027
  Serious: Yes (Hospitalization, Other)
  Sender: FDA-Public Use
  Company Number: CN-BRISTOL-MYERS SQUIBB COMPANY-2022-067462

PATIENT
  Age: 71 Year
  Sex: Male
  Weight: 57 kg

DRUGS (13)
  1. IPILIMUMAB [Suspect]
     Active Substance: IPILIMUMAB
     Indication: Non-small cell lung cancer
     Dosage: MG
     Route: 042
     Dates: start: 20220526, end: 20220526
  2. CARBOPLATIN [Suspect]
     Active Substance: CARBOPLATIN
     Indication: Non-small cell lung cancer
     Dosage: PRIOR TO THE ONSET OF THE EVENTS, THE PATIENT RECEIVED HIS MOST RECENT DOSE OF 199 MG ON 01-APR-2022
     Route: 065
     Dates: start: 20220311
  3. CARBOPLATIN [Suspect]
     Active Substance: CARBOPLATIN
     Route: 065
     Dates: start: 20220401
  4. PACLITAXEL [Suspect]
     Active Substance: PACLITAXEL
     Indication: Non-small cell lung cancer
     Dosage: PRIOR TO THE ONSET OF THE EVENTS, THE PATIENT RECEIVED HIS MOST RECENT DOSE OF 69 MG  ON 01-APR-2022
     Route: 065
     Dates: start: 20220311
  5. PACLITAXEL [Suspect]
     Active Substance: PACLITAXEL
     Route: 065
     Dates: start: 20220401
  6. FINASTERIDE [Concomitant]
     Active Substance: FINASTERIDE
     Indication: Dysuria
     Dosage: DAILY; PER DAY
     Route: 048
     Dates: start: 20220621
  7. CEFOTIAM HYDROCHLORIDE [Concomitant]
     Active Substance: CEFOTIAM HYDROCHLORIDE
     Indication: Immune-mediated lung disease
     Dosage: CEFOTIAM HYDROCHLORIDE FOR INJECTION?EVERY 12 HOURS
     Route: 042
     Dates: start: 20220614, end: 20220621
  8. CELECOXIB [Concomitant]
     Active Substance: CELECOXIB
     Indication: Gingivitis
     Dosage: EVERY 12 HOURS
     Route: 048
     Dates: start: 20220617, end: 20220621
  9. METHYLPREDNISOLONE [Concomitant]
     Active Substance: METHYLPREDNISOLONE
     Indication: Immune-mediated lung disease
     Dosage: DAILY; PER DAY
     Route: 048
     Dates: start: 20220621, end: 20220626
  10. METHYLPREDNISOLONE [Concomitant]
     Active Substance: METHYLPREDNISOLONE
     Route: 048
     Dates: start: 20220627, end: 20220627
  11. OMEPRAZOLE SODIUM [Concomitant]
     Active Substance: OMEPRAZOLE SODIUM
     Indication: Product used for unknown indication
     Dosage: OMEPRAZOLE ENTERIC-COATED CAPSULES?DAILY; PER DAY
     Route: 048
     Dates: start: 20220621
  12. KANGFUJING [Concomitant]
     Indication: Product used for unknown indication
     Dosage: 1 DF- 10 UNITS NOS?3 TIMES PER DAY
     Route: 048
     Dates: start: 20220325
  13. CETIRIZINE HYDROCHLORIDE [Concomitant]
     Active Substance: CETIRIZINE HYDROCHLORIDE
     Indication: Product used for unknown indication
     Dosage: DAILY; PER DAY
     Route: 048
     Dates: start: 20220606, end: 20220627

REACTIONS (2)
  - Interstitial lung disease [Recovering/Resolving]
  - Pneumocystis jirovecii pneumonia [Recovered/Resolved]

NARRATIVE: CASE EVENT DATE: 20220628
